FAERS Safety Report 18299583 (Version 1)
Quarter: 2020Q3

REPORT INFORMATION
  Report Type: Spontaneous
  Country: US (occurrence: US)
  Receive Date: 20200922
  Receipt Date: 20200922
  Transmission Date: 20201103
  Serious: Yes (Other)
  Sender: FDA-Public Use
  Company Number: US-PURDUE-USA-2020-0166406

PATIENT
  Sex: Female

DRUGS (1)
  1. OXYCONTIN [Suspect]
     Active Substance: OXYCODONE HYDROCHLORIDE
     Indication: PRODUCT USED FOR UNKNOWN INDICATION
     Dosage: UNK
     Route: 048

REACTIONS (13)
  - Pain [Unknown]
  - Reduced facial expression [Unknown]
  - Bone density decreased [Unknown]
  - Drug dependence [Unknown]
  - Drug abuse [Unknown]
  - Myocardial infarction [Unknown]
  - Surgical failure [Unknown]
  - Emotional distress [Unknown]
  - Amnesia [Unknown]
  - Weight decreased [Unknown]
  - Disorientation [Unknown]
  - General physical health deterioration [Unknown]
  - Dark circles under eyes [Unknown]
